FAERS Safety Report 7528703-0 (Version None)
Quarter: 2011Q2

REPORT INFORMATION
  Report Type: 
  Country: None (occurrence: None)
  Receive Date: 20110607
  Receipt Date: 20110530
  Transmission Date: 20111010
  Serious: Yes (Other)
  Sender: FDA-Public Use
  Company Number: NL-PFIZER INC-2011116882

PATIENT

DRUGS (1)
  1. ECALTA [Suspect]

REACTIONS (1)
  - TORSADE DE POINTES [None]
